FAERS Safety Report 7784146-6 (Version None)
Quarter: 2011Q3

REPORT INFORMATION
  Report Type: 
  Country: None (occurrence: None)
  Receive Date: 20110928
  Receipt Date: 20110914
  Transmission Date: 20111222
  Serious: No
  Sender: FDA-Public Use
  Company Number: US-B.I. PHARMACEUTICALS,INC./RIDGEFIELD-2011-BP-19996BP

PATIENT
  Sex: Male

DRUGS (13)
  1. CALCIUM CARBONATE [Concomitant]
  2. VIT D3 [Concomitant]
  3. VIT B1 [Concomitant]
  4. CHROMIN PICOLINATE [Concomitant]
  5. DILTIAZEM HCL [Concomitant]
     Indication: ATRIAL FIBRILLATION
     Dosage: 30 MG
     Route: 048
  6. PRADAXA [Suspect]
     Indication: ATRIAL FIBRILLATION
     Dosage: 300 MG
     Route: 048
     Dates: start: 20110801
  7. COD LIVER OIL [Concomitant]
  8. AZELASTINE HCL [Concomitant]
  9. GLIMEPIRIDE [Concomitant]
     Indication: DIABETES MELLITUS
     Dosage: 1 MG
     Route: 048
  10. XALATAN [Concomitant]
     Indication: SLEEP APNOEA SYNDROME
     Route: 045
  11. SIMVASTATIN [Concomitant]
     Indication: BLOOD CHOLESTEROL INCREASED
     Dosage: 40 MG
     Route: 048
  12. METFORMIN HCL [Concomitant]
     Indication: DIABETES MELLITUS
     Dosage: 500 MG
     Route: 048
  13. MULTI-VITAMIN [Concomitant]
     Indication: THROMBOCYTOPENIA
     Route: 048

REACTIONS (7)
  - DIZZINESS [None]
  - DYSPEPSIA [None]
  - ABDOMINAL PAIN [None]
  - DIARRHOEA [None]
  - FLATULENCE [None]
  - DYSPHAGIA [None]
  - NAUSEA [None]
